FAERS Safety Report 24162293 (Version 1)
Quarter: 2024Q3

REPORT INFORMATION
  Report Type: Spontaneous
  Country: CN (occurrence: CN)
  Receive Date: 20240801
  Receipt Date: 20240801
  Transmission Date: 20241016
  Serious: Yes (Other)
  Sender: PFIZER
  Company Number: CN-PFIZER INC-PV202400098782

PATIENT
  Age: 54 Year
  Sex: Female
  Weight: 48 kg

DRUGS (1)
  1. LINEZOLID [Suspect]
     Active Substance: LINEZOLID
     Indication: Anti-infective therapy
     Dosage: Q12H
     Route: 048
     Dates: start: 20240717, end: 20240717

REACTIONS (3)
  - Pain [Recovering/Resolving]
  - Pruritus [Recovering/Resolving]
  - Hyperhidrosis [Recovering/Resolving]

NARRATIVE: CASE EVENT DATE: 20240717
